FAERS Safety Report 9671479 (Version 2)
Quarter: 2013Q4

REPORT INFORMATION
  Report Type: Spontaneous
  Country: US (occurrence: US)
  Receive Date: 20131106
  Receipt Date: 20131118
  Transmission Date: 20140711
  Serious: No
  Sender: FDA-Public Use
  Company Number: US-PFIZER INC-2013316618

PATIENT
  Age: 53 Year
  Sex: Male
  Weight: 117 kg

DRUGS (4)
  1. NICOTROL INHALER [Suspect]
     Indication: SMOKING CESSATION THERAPY
     Dosage: UNK, (NOT MORE THAN 16 PUFFS IN 24HRS)
     Route: 055
     Dates: start: 201301
  2. AMITRIPTYLINE [Concomitant]
     Indication: INSOMNIA
     Dosage: UNK
  3. KLONOPIN [Concomitant]
     Indication: INSOMNIA
     Dosage: UNK
  4. ATIVAN [Concomitant]
     Indication: INSOMNIA
     Dosage: UNK

REACTIONS (3)
  - Product quality issue [Unknown]
  - Poor quality drug administered [Unknown]
  - Drug ineffective [Unknown]
